FAERS Safety Report 8545507 (Version 2)
Quarter: 2013Q1

REPORT INFORMATION
  Report Type: Spontaneous
  Country: US (occurrence: None)
  Receive Date: 20120426
  Receipt Date: 20121106
  Transmission Date: 20140127
  Serious: Yes (Other)
  Sender: FDA-Public Use
  Company Number: 2012-1769

PATIENT
  Age: 4 Year
  Sex: Female
  Weight: 15.5 kg

DRUGS (2)
  1. INCRELEX [Suspect]
     Indication: RETT^S DISORDER
     Dosage: 3.6 MG (1.8 MG, 2 IN 1 D), UNKNOWN
     Dates: start: 20120131
  2. MIRALAX [Concomitant]

REACTIONS (1)
  - Precocious puberty [None]
